FAERS Safety Report 4887325-0 (Version None)
Quarter: 2005Q4

REPORT INFORMATION
  Report Type: 
  Country: None (occurrence: None)
  Receive Date: 20051221
  Receipt Date: 20050824
  Transmission Date: 20060501
  Serious: No
  Sender: FDA-Public Use
  Company Number: US-YAMANOUCHI-YPA20050448

PATIENT
  Age: 54 Year
  Sex: Female
  Weight: 81.6475 kg

DRUGS (2)
  1. VESICARE [Suspect]
     Indication: HYPERTONIC BLADDER
     Dosage: 2.5 MG QD PO
     Route: 048
     Dates: start: 20050823
  2. ESTROVEN EXTRA-STRENGTH [Concomitant]

REACTIONS (3)
  - FATIGUE [None]
  - HEADACHE [None]
  - PRURITUS [None]
